FAERS Safety Report 8471380-5 (Version None)
Quarter: 2012Q2

REPORT INFORMATION
  Report Type: 
  Country: None (occurrence: None)
  Receive Date: 20120627
  Receipt Date: 20120615
  Transmission Date: 20120825
  Serious: Yes (Hospitalization)
  Sender: FDA-Public Use
  Company Number: US-ALLERGAN-1208416US

PATIENT
  Age: 50 Year
  Sex: Female

DRUGS (7)
  1. BOTULINUM TOXIN TYPE A [Suspect]
     Indication: MIGRAINE
     Dosage: 31 UNITS, SINGLE
     Route: 030
     Dates: start: 20120605, end: 20120605
  2. TOLMETIN SODIUM [Concomitant]
     Indication: PRODUCT USED FOR UNKNOWN INDICATION
     Dosage: 400 MG, UNK
  3. NARATRIPTAN [Concomitant]
     Indication: MIGRAINE
     Dosage: UNK
  4. SUMAVEL INJECTIONS [Concomitant]
     Indication: MIGRAINE
  5. MAXALT [Concomitant]
     Indication: MIGRAINE
     Dosage: UNK
  6. CIPRO                              /00042702/ [Concomitant]
     Indication: RESPIRATORY TRACT INFECTION
  7. FLEXERIL [Concomitant]
     Indication: ARTHROPATHY

REACTIONS (6)
  - INJECTION SITE PAIN [None]
  - VOMITING [None]
  - DRUG INEFFECTIVE [None]
  - FATIGUE [None]
  - NAUSEA [None]
  - MIGRAINE [None]
